FAERS Safety Report 12613669 (Version 2)
Quarter: 2016Q3

REPORT INFORMATION
  Report Type: Other
  Country: US (occurrence: US)
  Receive Date: 20160802
  Receipt Date: 20160821
  Transmission Date: 20161109
  Serious: Yes (Other)
  Sender: FDA-Public Use
  Company Number: US-DEXPHARM-20161593

PATIENT
  Age: 56 Year
  Sex: Female

DRUGS (1)
  1. HIBICLENS [Suspect]
     Active Substance: CHLORHEXIDINE GLUCONATE
     Indication: PREOPERATIVE CARE

REACTIONS (3)
  - Corneal defect [Recovered/Resolved]
  - Accidental exposure to product [Recovered/Resolved]
  - Keratitis [Recovered/Resolved]
